FAERS Safety Report 7889514-X (Version None)
Quarter: 2011Q4

REPORT INFORMATION
  Report Type: 
  Country: None (occurrence: None)
  Receive Date: 20111103
  Receipt Date: 20111031
  Transmission Date: 20120403
  Serious: Yes (Hospitalization, Other)
  Sender: FDA-Public Use
  Company Number: US-PFIZER INC-2010009227

PATIENT
  Sex: Female

DRUGS (2)
  1. CHANTIX [Suspect]
     Indication: SMOKING CESSATION THERAPY
     Dosage: ONE MG PER DAY.
     Dates: start: 20061110, end: 20081130
  2. CELEXA [Concomitant]
     Indication: BIPOLAR DISORDER
     Dosage: UNK
     Dates: start: 20050101

REACTIONS (7)
  - SUICIDE ATTEMPT [None]
  - ABNORMAL BEHAVIOUR [None]
  - MOOD ALTERED [None]
  - ANXIETY [None]
  - IMPAIRED DRIVING ABILITY [None]
  - INTENTIONAL OVERDOSE [None]
  - DEPRESSION [None]
